FAERS Safety Report 4744466-6 (Version None)
Quarter: 2005Q3

REPORT INFORMATION
  Report Type: 
  Country: None (occurrence: None)
  Receive Date: 20050809
  Receipt Date: 20050803
  Transmission Date: 20060218
  Serious: Yes (Hospitalization)
  Sender: FDA-Public Use
  Company Number: 2005US-00626

PATIENT
  Sex: Female
  Weight: 40.3 kg

DRUGS (5)
  1. LORAZEPAM [Suspect]
     Indication: DEPRESSION
     Dosage: 0.5 MG, QD, ORAL
     Route: 048
     Dates: start: 20050101
  2. PAXIL [Suspect]
     Indication: DEPRESSION
  3. LEVONTHROID TABLET [Concomitant]
  4. PRILOSEC [Concomitant]
  5. NEXIUM [Concomitant]

REACTIONS (11)
  - AGITATION [None]
  - ANXIETY [None]
  - BLOOD PRESSURE INCREASED [None]
  - CHEST PAIN [None]
  - DRUG INEFFECTIVE [None]
  - DRUG WITHDRAWAL SYNDROME [None]
  - HEAD DISCOMFORT [None]
  - INSOMNIA [None]
  - NAUSEA [None]
  - PALPITATIONS [None]
  - PHARYNGEAL HYPOAESTHESIA [None]
